FAERS Safety Report 12352605 (Version 3)
Quarter: 2017Q4

REPORT INFORMATION
  Report Type: Spontaneous
  Country: US (occurrence: US)
  Receive Date: 20160510
  Receipt Date: 20171124
  Transmission Date: 20180320
  Serious: Yes (Hospitalization)
  Sender: FDA-Public Use
  Company Number: US-B.I. PHARMACEUTICALS,INC./RIDGEFIELD-2016-BI-29205BI

PATIENT
  Age: 69 Year
  Sex: Male

DRUGS (21)
  1. LABETALOL [Concomitant]
     Active Substance: LABETALOL\LABETALOL HYDROCHLORIDE
     Indication: CHEST PAIN
  2. AMLODIPINE [Concomitant]
     Active Substance: AMLODIPINE BESYLATE
     Indication: CHEST PAIN
  3. ZOCOR [Concomitant]
     Active Substance: SIMVASTATIN
     Indication: BLOOD CHOLESTEROL ABNORMAL
     Route: 048
  4. FISH OIL [Concomitant]
     Active Substance: FISH OIL
     Indication: PHYTOTHERAPY
     Route: 048
  5. AUGMENTIN [Concomitant]
     Active Substance: AMOXICILLIN\CLAVULANATE POTASSIUM
     Indication: PRODUCT USED FOR UNKNOWN INDICATION
     Dosage: STRENGTH AND UNIT DOSE: 875MG-125MG; DAILY DOSE: 1750MG-250MG
     Route: 048
     Dates: start: 20150331, end: 20150405
  6. METHOCARBAMOL. [Concomitant]
     Active Substance: METHOCARBAMOL
     Indication: MYALGIA
     Route: 048
  7. ELPPA COQ10 [Concomitant]
     Indication: PHYTOTHERAPY
     Route: 065
     Dates: start: 20150325
  8. CENTRUM SILVER [Concomitant]
     Active Substance: MINERALS\VITAMINS
     Indication: VITAMIN SUPPLEMENTATION
     Route: 048
     Dates: start: 20150325
  9. NORVASC [Concomitant]
     Active Substance: AMLODIPINE BESYLATE
     Indication: PRODUCT USED FOR UNKNOWN INDICATION
     Dosage: STRENGTH: 10
     Route: 048
  10. LISINOPRIL. [Concomitant]
     Active Substance: LISINOPRIL
     Indication: BLOOD PRESSURE ABNORMAL
     Route: 065
  11. POTASSIUM CHLORIDE. [Concomitant]
     Active Substance: POTASSIUM CHLORIDE
     Indication: MINERAL DEFICIENCY
     Route: 048
  12. AMIODARONE [Concomitant]
     Active Substance: AMIODARONE
     Indication: PRODUCT USED FOR UNKNOWN INDICATION
     Route: 048
  13. CHONDROITIN-GLUCOSAMINE [Concomitant]
     Indication: PHYTOTHERAPY
     Route: 048
  14. PRADAXA [Suspect]
     Active Substance: DABIGATRAN ETEXILATE MESYLATE
     Indication: ATRIAL FIBRILLATION
     Route: 048
     Dates: start: 20141205
  15. LABETALOL [Concomitant]
     Active Substance: LABETALOL\LABETALOL HYDROCHLORIDE
     Indication: BLOOD PRESSURE ABNORMAL
     Route: 048
  16. AMLODIPINE [Concomitant]
     Active Substance: AMLODIPINE BESYLATE
     Indication: BLOOD PRESSURE ABNORMAL
     Route: 048
  17. LASIX [Concomitant]
     Active Substance: FUROSEMIDE
     Indication: DIURETIC THERAPY
     Route: 048
  18. CHOLESTYRAMINE. [Concomitant]
     Active Substance: CHOLESTYRAMINE
     Indication: BLOOD CHOLESTEROL ABNORMAL
     Route: 048
  19. ALPHA LIPOIC ACID [Concomitant]
     Active Substance: .ALPHA.-LIPOIC ACID
     Indication: PHYTOTHERAPY
     Route: 048
  20. PRADAXA [Suspect]
     Active Substance: DABIGATRAN ETEXILATE MESYLATE
     Route: 048
     Dates: start: 20150331
  21. CLONIDINE. [Concomitant]
     Active Substance: CLONIDINE
     Indication: BLOOD PRESSURE ABNORMAL
     Route: 048

REACTIONS (1)
  - Haemoptysis [Recovered/Resolved]

NARRATIVE: CASE EVENT DATE: 20150328
